FAERS Safety Report 6177439-X (Version None)
Quarter: 2009Q2

REPORT INFORMATION
  Report Type: 
  Country: None (occurrence: None)
  Receive Date: 20090501
  Receipt Date: 20090501
  Transmission Date: 20091009
  Serious: Yes (Hospitalization)
  Sender: FDA-Public Use
  Company Number: None

PATIENT
  Age: 60 Year
  Sex: Male
  Weight: 84 kg

DRUGS (1)
  1. MYCOPHENOLATE MOFETIL [Suspect]
     Indication: OCULAR HYPERTENSION
     Dosage: 1250MG PO Q12  HRS
     Route: 048

REACTIONS (4)
  - DIARRHOEA [None]
  - NAUSEA [None]
  - RENAL FAILURE ACUTE [None]
  - VOMITING [None]
